FAERS Safety Report 4660912-0 (Version None)
Quarter: 2005Q2

REPORT INFORMATION
  Report Type: 
  Country: None (occurrence: None)
  Receive Date: 20050511
  Receipt Date: 20050401
  Transmission Date: 20051028
  Serious: Yes (Hospitalization)
  Sender: FDA-Public Use
  Company Number: Q05-018

PATIENT
  Sex: Male
  Weight: 62.5964 kg

DRUGS (3)
  1. QUADRAMET [Suspect]
     Indication: PROSTATE CANCER METASTATIC
     Dosage: 63 MCI I.V. ONCE
     Route: 042
     Dates: start: 20050210
  2. OXYCODONE HCL [Concomitant]
  3. OXYCONTIN [Concomitant]

REACTIONS (1)
  - ACUTE MYOCARDIAL INFARCTION [None]
